FAERS Safety Report 5305690-7 (Version None)
Quarter: 2007Q2

REPORT INFORMATION
  Report Type: 
  Country: None (occurrence: None)
  Receive Date: 20070423
  Receipt Date: 20070423
  Transmission Date: 20071010
  Serious: Yes (Hospitalization)
  Sender: FDA-Public Use
  Company Number: None

PATIENT
  Age: 69 Year
  Sex: Male
  Weight: 56.246 kg

DRUGS (1)
  1. PHENYTOIN [Suspect]
     Dosage: 400 MG QHS PO
     Route: 048
     Dates: start: 20060223, end: 20070309

REACTIONS (4)
  - DIZZINESS [None]
  - DRUG TOXICITY [None]
  - FALL [None]
  - ORAL INTAKE REDUCED [None]
